FAERS Safety Report 16982931 (Version 1)
Quarter: 2019Q4

REPORT INFORMATION
  Report Type: Spontaneous
  Country: DE (occurrence: DE)
  Receive Date: 20191101
  Receipt Date: 20191101
  Transmission Date: 20200122
  Serious: Yes (Disabling)
  Sender: FDA-Public Use
  Company Number: DE-LEO PHARMA-325642

PATIENT
  Age: 62 Year
  Sex: Female

DRUGS (4)
  1. ELIDEL [Suspect]
     Active Substance: PIMECROLIMUS
     Indication: DERMATITIS ATOPIC
     Dosage: FOR CHRONIC HAND ECZEMA UNTIL 30-SEP-2019 AND OTHER ATOPIC ECZEMA-TREATMENT WAS ONGOING
     Route: 061
     Dates: end: 20191014
  2. ELIDEL [Suspect]
     Active Substance: PIMECROLIMUS
     Indication: ECZEMA
  3. PROTOPIC [Suspect]
     Active Substance: TACROLIMUS
     Indication: ECZEMA
     Dosage: NOT REPORTED
     Route: 061
     Dates: start: 20190930, end: 20191014
  4. L-THYROXIN [Concomitant]
     Active Substance: LEVOTHYROXINE SODIUM
     Indication: HYPOTHYROIDISM
     Route: 048

REACTIONS (3)
  - Loss of personal independence in daily activities [Unknown]
  - Skin burning sensation [Not Recovered/Not Resolved]
  - Product use in unapproved indication [Unknown]
